FAERS Safety Report 9166595 (Version 1)
Quarter: 2013Q1

REPORT INFORMATION
  Report Type: Spontaneous
  Country: FR (occurrence: FR)
  Receive Date: 20130315
  Receipt Date: 20130315
  Transmission Date: 20140127
  Serious: Yes (Hospitalization)
  Sender: FDA-Public Use
  Company Number: FR-AMGEN-FRASP2013017977

PATIENT
  Age: 63 Year
  Sex: Female

DRUGS (6)
  1. ENBREL [Suspect]
     Indication: PSORIATIC ARTHROPATHY
     Dosage: 1 DF, WEEKLY
     Route: 058
     Dates: start: 2010, end: 201205
  2. NEURONTIN [Concomitant]
     Dosage: UNK
  3. METOJECT [Concomitant]
     Indication: PSORIATIC ARTHROPATHY
     Dosage: 15 MG, WEEKLY
     Dates: end: 201205
  4. LEVOTHYROX [Concomitant]
     Dosage: UNK
  5. FLECAINE [Concomitant]
     Dosage: UNK
  6. CYMBALTA [Concomitant]
     Dosage: UNK

REACTIONS (1)
  - Congestive cardiomyopathy [Not Recovered/Not Resolved]
